FAERS Safety Report 8457589-5 (Version None)
Quarter: 2012Q2

REPORT INFORMATION
  Report Type: 
  Country: None (occurrence: None)
  Receive Date: 20120622
  Receipt Date: 20120615
  Transmission Date: 20120825
  Serious: Yes (Hospitalization, Other)
  Sender: FDA-Public Use
  Company Number: US-BIOGENIDEC-2012BI021540

PATIENT
  Age: 45 Year
  Sex: Female

DRUGS (2)
  1. AVONEX [Suspect]
     Route: 030
     Dates: start: 20030801
  2. AVONEX [Suspect]
     Indication: MULTIPLE SCLEROSIS
     Route: 030
     Dates: start: 19980301, end: 20030801

REACTIONS (16)
  - ANEURYSM [None]
  - HEAD INJURY [None]
  - INTRACRANIAL ANEURYSM [None]
  - COORDINATION ABNORMAL [None]
  - BALANCE DISORDER [None]
  - URINARY INCONTINENCE [None]
  - BLADDER PROLAPSE [None]
  - BLINDNESS [None]
  - MULTIPLE SCLEROSIS RELAPSE [None]
  - MOBILITY DECREASED [None]
  - FALL [None]
  - LACERATION [None]
  - MUSCULAR WEAKNESS [None]
  - MULTIPLE SCLEROSIS [None]
  - TREMOR [None]
  - CYSTITIS [None]
